FAERS Safety Report 8182706-4 (Version None)
Quarter: 2012Q1

REPORT INFORMATION
  Report Type: 
  Country: None (occurrence: None)
  Receive Date: 20120305
  Receipt Date: 20120228
  Transmission Date: 20120608
  Serious: No
  Sender: FDA-Public Use
  Company Number: US-PFIZER INC-2012052911

PATIENT
  Sex: Male
  Weight: 80.726 kg

DRUGS (1)
  1. LYRICA [Suspect]
     Indication: BACK PAIN
     Dosage: 50 MG, 1X/DAY
     Route: 048
     Dates: start: 20120227

REACTIONS (3)
  - GAIT DISTURBANCE [None]
  - BACK PAIN [None]
  - ABNORMAL DREAMS [None]
